FAERS Safety Report 6464019-1 (Version None)
Quarter: 2009Q4

REPORT INFORMATION
  Report Type: 
  Country: None (occurrence: None)
  Receive Date: 20091130
  Receipt Date: 20091130
  Transmission Date: 20100525
  Serious: No
  Sender: FDA-Public Use
  Company Number: None

PATIENT
  Sex: Female
  Weight: 112.4921 kg

DRUGS (1)
  1. TRI LO SPRINTEC [Suspect]
     Indication: DYSMENORRHOEA
     Dosage: ONCE TAB QD PO PAST 1-2 MONTHS
     Route: 048

REACTIONS (3)
  - ACNE [None]
  - METRORRHAGIA [None]
  - WEIGHT INCREASED [None]
